FAERS Safety Report 10309878 (Version 1)
Quarter: 2014Q3

REPORT INFORMATION
  Report Type: Spontaneous
  Country: US (occurrence: US)
  Receive Date: 20140717
  Receipt Date: 20140717
  Transmission Date: 20150326
  Serious: No
  Sender: FDA-Public Use
  Company Number: US-SHIRE-US201404001

PATIENT
  Sex: Female

DRUGS (4)
  1. HUMIRA [Concomitant]
     Active Substance: ADALIMUMAB
     Indication: COLITIS ULCERATIVE
     Dosage: 40 MG, 1X/2WKS
     Route: 065
     Dates: start: 201305, end: 201406
  2. HUMIRA [Concomitant]
     Active Substance: ADALIMUMAB
     Dosage: 40 MG, 1X/WEEK
     Route: 065
     Dates: start: 201406
  3. LIALDA [Suspect]
     Active Substance: MESALAMINE
     Indication: COLITIS ULCERATIVE
     Dosage: 4.8 G  (FOUR 1.2 G TABLETS), 1X/DAY:QD
     Route: 048
     Dates: start: 201402
  4. UCERIS [Concomitant]
     Active Substance: BUDESONIDE
     Indication: COLITIS ULCERATIVE
     Dosage: UNK UNK, UNKNOWN
     Route: 065
     Dates: start: 201403, end: 201405

REACTIONS (2)
  - Drug ineffective [Unknown]
  - Menstruation irregular [Recovered/Resolved]

NARRATIVE: CASE EVENT DATE: 2014
